FAERS Safety Report 15794556 (Version 1)
Quarter: 2019Q1

REPORT INFORMATION
  Report Type: Spontaneous
  Country: US (occurrence: US)
  Receive Date: 20190106
  Receipt Date: 20190106
  Transmission Date: 20190417
  Serious: Yes (Disabling)
  Sender: FDA-Public Use
  Company Number: None

PATIENT
  Age: 26 Year
  Sex: Male
  Weight: 66.15 kg

DRUGS (1)
  1. SERTRALINE HCL [Suspect]
     Active Substance: SERTRALINE HYDROCHLORIDE
     Indication: OBSESSIVE-COMPULSIVE DISORDER
     Dosage: ?          QUANTITY:2 TABLET(S);?
     Route: 048

REACTIONS (33)
  - Depersonalisation/derealisation disorder [None]
  - Influenza like illness [None]
  - Joint noise [None]
  - Hypersensitivity [None]
  - Coordination abnormal [None]
  - Myalgia [None]
  - Sexual dysfunction [None]
  - Suicidal ideation [None]
  - Personality disorder [None]
  - Nausea [None]
  - Muscular weakness [None]
  - Penis disorder [None]
  - Muscle atrophy [None]
  - Arthropathy [None]
  - Impaired work ability [None]
  - Amnesia [None]
  - Allodynia [None]
  - Fatigue [None]
  - Panic attack [None]
  - Dysphoria [None]
  - Obsessive-compulsive disorder [None]
  - Crying [None]
  - Paraesthesia [None]
  - Balance disorder [None]
  - Flat affect [None]
  - Bone pain [None]
  - Insomnia [None]
  - Vomiting [None]
  - Anxiety [None]
  - Exercise tolerance decreased [None]
  - Cognitive disorder [None]
  - Photophobia [None]
  - Dry skin [None]

NARRATIVE: CASE EVENT DATE: 20171225
